FAERS Safety Report 21215921 (Version 1)
Quarter: 2022Q3

REPORT INFORMATION
  Report Type: Spontaneous
  Country: FR (occurrence: FR)
  Receive Date: 20220816
  Receipt Date: 20220816
  Transmission Date: 20221027
  Serious: Yes (Other)
  Sender: FDA-Public Use
  Company Number: None

PATIENT
  Age: 39 Year
  Sex: Female

DRUGS (1)
  1. NEXPLANON [Suspect]
     Active Substance: ETONOGESTREL
     Indication: Hormonal contraception
     Dosage: 1 DOSAGE FORM, IMPLANT FOR SUBCUTANEOUS  USE (ROUTE IS ALSO REPORTED AS SUBDERMAL)
     Route: 058
     Dates: end: 202205

REACTIONS (1)
  - Meningioma [Not Recovered/Not Resolved]

NARRATIVE: CASE EVENT DATE: 20220331
